FAERS Safety Report 11045664 (Version 2)
Quarter: 2015Q2

REPORT INFORMATION
  Report Type: Spontaneous
  Country: US (occurrence: US)
  Receive Date: 20150417
  Receipt Date: 20150519
  Transmission Date: 20150821
  Serious: No
  Sender: FDA-Public Use
  Company Number: US-GLAXOSMITHKLINE-US2015051282

PATIENT
  Age: 63 Year
  Sex: Female
  Weight: 85.26 kg

DRUGS (19)
  1. THERAGRAN [Concomitant]
     Active Substance: VITAMINS
  2. MYCOSTATIN [Concomitant]
     Active Substance: NYSTATIN
  3. LISINOPRIL. [Concomitant]
     Active Substance: LISINOPRIL
  4. LYRICA [Concomitant]
     Active Substance: PREGABALIN
  5. LIPITOR [Concomitant]
     Active Substance: ATORVASTATIN CALCIUM
  6. LASIX [Concomitant]
     Active Substance: FUROSEMIDE
  7. LANTUS [Concomitant]
     Active Substance: INSULIN GLARGINE
  8. INVOKANA [Concomitant]
     Active Substance: CANAGLIFLOZIN
  9. NOVOLOG [Concomitant]
     Active Substance: INSULIN ASPART
  10. GLUCOPHAGE XR [Concomitant]
     Active Substance: METFORMIN HYDROCHLORIDE
  11. ALBUTEROL. [Concomitant]
     Active Substance: ALBUTEROL
  12. VITAMIN C [Concomitant]
     Active Substance: ASCORBIC ACID
  13. ASPIRIN. [Concomitant]
     Active Substance: ASPIRIN
  14. LOPRESSOR [Concomitant]
     Active Substance: METOPROLOL TARTRATE
  15. GLUCOPHAGE [Concomitant]
     Active Substance: METFORMIN HYDROCHLORIDE
  16. TANZEUM [Suspect]
     Active Substance: ALBIGLUTIDE
     Indication: TYPE 2 DIABETES MELLITUS
     Dosage: 30 MG, WE
     Route: 058
     Dates: start: 20150313
  17. JANUVIA [Concomitant]
     Active Substance: SITAGLIPTIN PHOSPHATE
  18. ALDACTONE [Concomitant]
     Active Substance: SPIRONOLACTONE
  19. BROVANA [Concomitant]
     Active Substance: ARFORMOTEROL TARTRATE

REACTIONS (15)
  - Gastrointestinal disorder [Unknown]
  - Cough [Recovering/Resolving]
  - Wheezing [Unknown]
  - Flatulence [Unknown]
  - Pain in extremity [Unknown]
  - Insomnia [Unknown]
  - Abdominal discomfort [Recovered/Resolved]
  - Skin reaction [Unknown]
  - Hepatitis [Unknown]
  - Skin irritation [Unknown]
  - Pruritus [Unknown]
  - Transaminases increased [Recovering/Resolving]
  - Chromaturia [Recovering/Resolving]
  - Rash papular [Unknown]
  - Dysphonia [Unknown]

NARRATIVE: CASE EVENT DATE: 20150313
